FAERS Safety Report 24300389 (Version 1)
Quarter: 2024Q3

REPORT INFORMATION
  Report Type: Spontaneous
  Country: HU (occurrence: HU)
  Receive Date: 20240909
  Receipt Date: 20240909
  Transmission Date: 20241016
  Serious: Yes (Hospitalization)
  Sender: BIOGEN
  Company Number: HU-BIOGEN-2024BI01276275

PATIENT
  Age: 6 Year
  Sex: Male

DRUGS (2)
  1. SPINRAZA [Suspect]
     Active Substance: NUSINERSEN
     Indication: Spinal muscular atrophy
     Dosage: 12 MG/5ML
     Route: 050
     Dates: start: 2018
  2. SPINRAZA [Suspect]
     Active Substance: NUSINERSEN
     Dosage: 12.5 MG/5 ML, LAST SPINRAZA ADMINISTRATION WAS ON 26-JUL-2024, TOTAL NUMBER OF DOSES RECEIVED: 21...
     Route: 050
     Dates: start: 20240328

REACTIONS (3)
  - Procedural nausea [Unknown]
  - Post lumbar puncture syndrome [Unknown]
  - Procedural vomiting [Unknown]

NARRATIVE: CASE EVENT DATE: 20240728
